FAERS Safety Report 5795838-2 (Version None)
Quarter: 2008Q3

REPORT INFORMATION
  Report Type: 
  Country: None (occurrence: None)
  Receive Date: 20080701
  Receipt Date: 20080620
  Transmission Date: 20090109
  Serious: Yes (Hospitalization)
  Sender: FDA-Public Use
  Company Number: US-BAYER-200811962BCC

PATIENT
  Sex: Male

DRUGS (4)
  1. ASPIRIN [Suspect]
     Indication: ISCHAEMIC HEART DISEASE PROPHYLAXIS
     Dosage: TOTAL DAILY DOSE: 81 MG  UNIT DOSE: 81 MG
     Route: 048
  2. CENTRUM SILVER [Concomitant]
  3. ENALAPRIL MALEATE [Concomitant]
  4. SULAR [Concomitant]

REACTIONS (2)
  - HAEMORRHAGIC STROKE [None]
  - RECTAL HAEMORRHAGE [None]
